FAERS Safety Report 13120481 (Version 2)
Quarter: 2017Q1

REPORT INFORMATION
  Report Type: Other
  Country: FR (occurrence: FR)
  Receive Date: 20170117
  Receipt Date: 20170124
  Transmission Date: 20170428
  Serious: Yes (Hospitalization)
  Sender: FDA-Public Use
  Company Number: FR-TAKEDA-2017TUS001116

PATIENT
  Age: 69 Year
  Sex: Female

DRUGS (7)
  1. GEMZAR [Suspect]
     Active Substance: GEMCITABINE HYDROCHLORIDE
     Indication: CHOLANGIOCARCINOMA
     Dosage: 1000 MG, UNK
     Route: 042
     Dates: start: 20160712, end: 20161018
  2. ADENURIC [Suspect]
     Active Substance: FEBUXOSTAT
     Indication: HYPERURICAEMIA
     Dosage: 80 MG, QD
     Route: 048
     Dates: start: 20160715
  3. KARDEGIC [Suspect]
     Active Substance: ASPIRIN LYSINE
     Indication: CAROTID ARTERIOSCLEROSIS
     Dosage: 75 MG, QD
     Route: 048
     Dates: start: 20161004
  4. FERRIC CARBOXYMALTOSE [Concomitant]
     Active Substance: FERRIC CARBOXYMALTOSE
     Dosage: UNK
     Dates: start: 201609
  5. ARANESP [Suspect]
     Active Substance: DARBEPOETIN ALFA
     Indication: ANAEMIA
     Dosage: UNK
     Route: 058
     Dates: start: 20160906
  6. OXALIPLATIN HOSPIRA [Suspect]
     Active Substance: OXALIPLATIN
     Indication: CHOLANGIOCARCINOMA
     Dosage: 5 MG/ML, UNK
     Route: 042
     Dates: start: 20160712, end: 20161018
  7. PYOSTACINE [Concomitant]
     Active Substance: PRISTINAMYCIN
     Indication: WOUND INFECTION
     Dosage: UNK
     Dates: start: 20161115, end: 20161126

REACTIONS (1)
  - Scleroderma-like reaction [Not Recovered/Not Resolved]

NARRATIVE: CASE EVENT DATE: 20161201
